FAERS Safety Report 10702527 (Version 2)
Quarter: 2015Q2

REPORT INFORMATION
  Report Type: Report from Study
  Country: US (occurrence: US)
  Receive Date: 20150109
  Receipt Date: 20150406
  Transmission Date: 20150821
  Serious: Yes (Death, Hospitalization, Other)
  Sender: FDA-Public Use
  Company Number: US-EXELIXIS-XL18415005094

PATIENT
  Age: 73 Year
  Sex: Female

DRUGS (1)
  1. XL184 [Suspect]
     Active Substance: CABOZANTINIB
     Indication: NON-SMALL CELL LUNG CANCER
     Dosage: 60 MG, QD
     Route: 048
     Dates: start: 20130805, end: 20141129

REACTIONS (13)
  - Hallucination [Unknown]
  - Muscular weakness [Unknown]
  - Decreased appetite [Unknown]
  - Hypotension [Unknown]
  - Non-small cell lung cancer [Fatal]
  - Hypothyroidism [Unknown]
  - Blood alkaline phosphatase increased [Unknown]
  - Lethargy [Unknown]
  - Urinary tract infection [Unknown]
  - Diarrhoea [Unknown]
  - Hypoalbuminaemia [Unknown]
  - Nausea [Unknown]
  - Aspartate aminotransferase increased [Unknown]

NARRATIVE: CASE EVENT DATE: 20141120
